FAERS Safety Report 22190119 (Version 4)
Quarter: 2024Q2

REPORT INFORMATION
  Report Type: Other
  Country: US (occurrence: None)
  Receive Date: 20230410
  Receipt Date: 20240608
  Transmission Date: 20240716
  Serious: No
  Sender: FDA-Public Use
  Company Number: US-ROCHE-3148367

PATIENT
  Age: 34 Year
  Sex: Female
  Weight: 77 kg

DRUGS (5)
  1. OCREVUS [Suspect]
     Active Substance: OCRELIZUMAB
     Indication: Relapsing-remitting multiple sclerosis
     Dosage: THAN 600 MG, EVERY 6 MONTH (DATE OF TREATMENT: 15/APR/2021,13/OCT/2020), LAST DATE OF TREATMENT: :20
     Route: 042
     Dates: start: 202009
  2. IRON [Concomitant]
     Active Substance: IRON
  3. LANOLIN [Concomitant]
     Active Substance: LANOLIN
  4. DOCUSATE [Concomitant]
     Active Substance: DOCUSATE
  5. IBUPROFEN [Concomitant]
     Active Substance: IBUPROFEN

REACTIONS (2)
  - Maternal exposure before pregnancy [Unknown]
  - COVID-19 [Unknown]

NARRATIVE: CASE EVENT DATE: 20220919
